FAERS Safety Report 6048514-5 (Version None)
Quarter: 2009Q1

REPORT INFORMATION
  Report Type: 
  Country: None (occurrence: None)
  Receive Date: 20090123
  Receipt Date: 20090114
  Transmission Date: 20090719
  Serious: Yes (Other)
  Sender: FDA-Public Use
  Company Number: B0555517A

PATIENT
  Age: 43 Year
  Sex: Female

DRUGS (2)
  1. AMOXICILLIN AND CLAVULANATE POTASSIUM [Suspect]
     Indication: UPPER RESPIRATORY TRACT INFECTION
  2. AMOXILLIN [Suspect]

REACTIONS (6)
  - ABDOMINAL PAIN [None]
  - ACUTE SINUSITIS [None]
  - ANGIOEDEMA [None]
  - DRUG HYPERSENSITIVITY [None]
  - PRURITUS [None]
  - URTICARIA [None]
